FAERS Safety Report 23865749 (Version 5)
Quarter: 2024Q4

REPORT INFORMATION
  Report Type: Spontaneous
  Country: CA (occurrence: CA)
  Receive Date: 20240517
  Receipt Date: 20241228
  Transmission Date: 20250115
  Serious: Yes (Other)
  Sender: CELLTRION
  Company Number: CA-PFIZER INC-202400043907

PATIENT

DRUGS (11)
  1. INFLECTRA [Suspect]
     Active Substance: INFLIXIMAB-DYYB
     Indication: Crohn^s disease
     Dosage: 500 MG, WEEKS 0,2 AND 6 THEN EVERY 8 WEEKS (WEEK 0 AT HOSPITAL)
     Route: 042
     Dates: start: 20240208
  2. INFLECTRA [Suspect]
     Active Substance: INFLIXIMAB-DYYB
     Dosage: 500 MG, WEEKS 0,2 AND 6 THEN EVERY 8 WEEKS (WEEK 0 AT HOSPITAL)
     Route: 042
     Dates: start: 20240215
  3. INFLECTRA [Suspect]
     Active Substance: INFLIXIMAB-DYYB
     Dosage: 500 MG, WEEKS 0,2 AND 6 THEN EVERY 8 WEEKS (WEEK 0 AT HOSPITAL)
     Route: 042
     Dates: start: 20240314
  4. INFLECTRA [Suspect]
     Active Substance: INFLIXIMAB-DYYB
     Dosage: 500 MG, WEEKS 0,2 AND 6 THEN EVERY 8 WEEKS (WEEK 0 AT HOSPITAL)
     Route: 042
     Dates: start: 20240509
  5. INFLECTRA [Suspect]
     Active Substance: INFLIXIMAB-DYYB
     Dosage: 500 MG, 8 WEEKS [WEEKS 0,2 AND 6 THEN EVERY 8 WEEKS (WEEK 0 AT HOSPITAL)]
     Route: 042
     Dates: start: 20240704
  6. INFLECTRA [Suspect]
     Active Substance: INFLIXIMAB-DYYB
     Dosage: 500 MG, WEEKS 0,2 AND 6 THEN EVERY 8 WEEKS (WEEK 0 AT HOSPITAL)
     Route: 042
     Dates: start: 20240827
  7. INFLECTRA [Suspect]
     Active Substance: INFLIXIMAB-DYYB
     Dosage: 500 MG, WEEKS 0,2 AND 6 THEN EVERY 8 WEEKS (WEEK 0 AT HOSPITAL)
     Route: 042
     Dates: start: 20240827
  8. INFLECTRA [Suspect]
     Active Substance: INFLIXIMAB-DYYB
     Dosage: 500 MG, EVERY 8 WEEKS (WEEKS 0,2 AND 6 THEN EVERY 8 WEEKS (WEEK 0 AT HOSPITAL))
     Route: 042
     Dates: start: 20241024
  9. INFLECTRA [Suspect]
     Active Substance: INFLIXIMAB-DYYB
     Dosage: 500 MG, EVERY 8 WEEKS (WEEKS 0,2 AND 6 THEN EVERY 8 WEEKS (WEEK 0 AT HOSPITAL))
     Route: 042
     Dates: start: 20241024, end: 20241024
  10. INFLECTRA [Suspect]
     Active Substance: INFLIXIMAB-DYYB
     Dosage: 500 MG, WEEKS 0,2 AND 6 THEN EVERY 8 WEEKS (WEEK 0 AT HOSPITAL)
     Route: 042
     Dates: start: 20241219
  11. PREDNISONE [Concomitant]
     Active Substance: PREDNISONE
     Dosage: UNK
     Dates: end: 2024

REACTIONS (10)
  - Blood pressure increased [Not Recovered/Not Resolved]
  - Hypertension [Not Recovered/Not Resolved]
  - Headache [Not Recovered/Not Resolved]
  - Fear of injection [Not Recovered/Not Resolved]
  - Heart rate increased [Unknown]
  - White coat hypertension [Unknown]
  - Off label use [Unknown]
  - Intentional product use issue [Unknown]
  - Off label use [Unknown]
  - Off label use [Unknown]

NARRATIVE: CASE EVENT DATE: 20240101
